FAERS Safety Report 13593761 (Version 2)
Quarter: 2017Q2

REPORT INFORMATION
  Report Type: Spontaneous
  Country: US (occurrence: US)
  Receive Date: 20170530
  Receipt Date: 20170602
  Transmission Date: 20170830
  Serious: Yes (Other)
  Sender: FDA-Public Use
  Company Number: US-AMGEN-USASP2017081410

PATIENT
  Sex: Female

DRUGS (2)
  1. IMLYGIC [Suspect]
     Active Substance: TALIMOGENE LAHERPAREPVEC
     Dosage: IMLYGIC 10^8
     Route: 065
     Dates: end: 201609
  2. IMLYGIC [Suspect]
     Active Substance: TALIMOGENE LAHERPAREPVEC
     Indication: SKIN LESION
     Dosage: IMLYGIC 10^8
     Route: 065
     Dates: start: 201607

REACTIONS (4)
  - Cellulitis [Recovering/Resolving]
  - Ulcer [Not Recovered/Not Resolved]
  - Neoplasm [Unknown]
  - Stomatitis [Unknown]

NARRATIVE: CASE EVENT DATE: 201610
